FAERS Safety Report 7635961-0 (Version None)
Quarter: 2011Q3

REPORT INFORMATION
  Report Type: 
  Country: None (occurrence: None)
  Receive Date: 20110726
  Receipt Date: 20110714
  Transmission Date: 20111222
  Serious: Yes (Hospitalization)
  Sender: FDA-Public Use
  Company Number: JP-ROCHE-733941

PATIENT
  Sex: Female
  Weight: 45.8 kg

DRUGS (13)
  1. TOCILIZUMAB [Suspect]
     Indication: RHEUMATOID ARTHRITIS
     Route: 058
     Dates: start: 20100929, end: 20100929
  2. ALENDRONATE SODIUM [Suspect]
     Indication: OSTEOPOROSIS
     Dosage: NOTE: ONCE A WEEK AND 35 MG/DAY SUNDAY
     Route: 048
     Dates: start: 20061115, end: 20101010
  3. LANSOPRAZOLE [Suspect]
     Route: 048
     Dates: start: 20080619, end: 20101011
  4. NETICONAZOLE HYDROCHLORIDE [Concomitant]
     Dosage: DOSE FORM: OINTMENT AND CREAM. NOTE: PROPER QUANTITY
     Route: 061
     Dates: start: 20100927, end: 20101011
  5. PLACEBO [Suspect]
     Indication: RHEUMATOID ARTHRITIS
     Route: 042
     Dates: start: 20100929, end: 20100929
  6. ISONIAZID [Suspect]
     Route: 048
     Dates: start: 20070119, end: 20101011
  7. SULFAMETHOXAZOLE [Suspect]
     Indication: INFECTION PROPHYLAXIS
     Dosage: NOTE: ONE/DAY DURING A DAY ONCE (MOON LIQUID GOLD)
     Route: 048
     Dates: start: 20061115, end: 20101011
  8. LAMISIL [Suspect]
     Indication: TINEA PEDIS
     Route: 048
     Dates: start: 20100927, end: 20101011
  9. AVELOX [Suspect]
     Indication: COUGH
     Route: 048
     Dates: start: 20101005, end: 20101011
  10. DEXTROMETHORPHAN HYDROBROMIDE [Suspect]
     Indication: COUGH
     Dosage: DRUG NAME REPPORTED AS: MEDICON (DETROMETHORPHAN HYDROBROMIDE)
     Route: 048
     Dates: start: 20101008, end: 20101011
  11. CELECOXIB [Suspect]
     Indication: RHEUMATOID ARTHRITIS
     Dosage: DRUG REPORTED AS CELECOX
     Route: 048
     Dates: start: 20070119, end: 20101011
  12. MUCOSOLVAN [Suspect]
     Indication: COUGH
     Route: 048
     Dates: start: 20101005, end: 20101011
  13. NETICONAZOLE HYDROCHLORIDE [Concomitant]
     Dosage: DOSE FORM: EXTERNAL APPLICATION LIQUID MEDICINE. NOTE: PROPER QUANTITY
     Route: 061
     Dates: start: 20100927, end: 20101011

REACTIONS (2)
  - SUBILEUS [None]
  - HYPONATRAEMIA [None]
